FAERS Safety Report 19806308 (Version 1)
Quarter: 2021Q3

REPORT INFORMATION
  Report Type: Spontaneous
  Country: US (occurrence: US)
  Receive Date: 20210908
  Receipt Date: 20210908
  Transmission Date: 20211014
  Serious: No
  Sender: FDA-Public Use
  Company Number: US-009507513-2108USA004131

PATIENT
  Age: 74 Year
  Sex: Male

DRUGS (4)
  1. BEVACIZUMAB. [Concomitant]
     Active Substance: BEVACIZUMAB
     Indication: HAEMANGIOPERICYTOMA OF MENINGES
     Dosage: 5 MG/KG, ON DAYS 8 AND 22/28?DAY CYCLE
  2. BEVACIZUMAB. [Concomitant]
     Active Substance: BEVACIZUMAB
     Indication: MALIGNANT HAEMANGIOPERICYTOMA METASTATIC
  3. TEMODAR [Suspect]
     Active Substance: TEMOZOLOMIDE
     Indication: HAEMANGIOPERICYTOMA OF MENINGES
     Dosage: 150 MG/M2, ON DAYS 1?7 AND 15?21/28?DAY CYCLE
     Route: 048
  4. TEMODAR [Suspect]
     Active Substance: TEMOZOLOMIDE
     Indication: MALIGNANT HAEMANGIOPERICYTOMA METASTATIC

REACTIONS (1)
  - Product use in unapproved indication [Unknown]
